FAERS Safety Report 8548209-X (Version None)
Quarter: 2012Q3

REPORT INFORMATION
  Report Type: 
  Country: None (occurrence: None)
  Receive Date: 20120730
  Receipt Date: 20120719
  Transmission Date: 20120928
  Serious: Yes (Other)
  Sender: FDA-Public Use
  Company Number: US-BIOGENIDEC-2012BI026502

PATIENT
  Age: 56 Year
  Sex: Female

DRUGS (1)
  1. AVONEX [Suspect]
     Indication: MULTIPLE SCLEROSIS
     Route: 030
     Dates: start: 19991025

REACTIONS (6)
  - DEPRESSED MOOD [None]
  - FALL [None]
  - CONVULSION [None]
  - UPPER LIMB FRACTURE [None]
  - DEPRESSION [None]
  - MULTIPLE SCLEROSIS RELAPSE [None]
